FAERS Safety Report 7071271-0 (Version None)
Quarter: 2010Q4

REPORT INFORMATION
  Report Type: 
  Country: None (occurrence: None)
  Receive Date: 20101021
  Receipt Date: 20101015
  Transmission Date: 20110411
  Serious: Yes (Death)
  Sender: FDA-Public Use
  Company Number: 2010US004318

PATIENT
  Age: 53 Year
  Sex: Female
  Weight: 61 kg

DRUGS (3)
  1. PROGRAF [Suspect]
     Indication: BONE MARROW TRANSPLANT
     Dosage: 1 MG, BID, ORAL
     Route: 048
     Dates: start: 20100410, end: 20100711
  2. PREDNISONE [Concomitant]
  3. ANTIBIOTICS [Concomitant]

REACTIONS (1)
  - SEPSIS [None]
